FAERS Safety Report 8191283-3 (Version None)
Quarter: 2012Q1

REPORT INFORMATION
  Report Type: 
  Country: None (occurrence: None)
  Receive Date: 20120221
  Receipt Date: 20111206
  Transmission Date: 20120608
  Serious: No
  Sender: FDA-Public Use
  Company Number: 047068

PATIENT

DRUGS (2)
  1. LACOSAMIDE [Suspect]
  2. DILANTIN [Suspect]
     Dosage: (DROPPED OR DECREASED)

REACTIONS (1)
  - DRUG INTERACTION [None]
